FAERS Safety Report 9710709 (Version 1)
Quarter: 2013Q4

REPORT INFORMATION
  Report Type: Spontaneous
  Country: US (occurrence: US)
  Receive Date: 20131126
  Receipt Date: 20131126
  Transmission Date: 20140711
  Serious: No
  Sender: FDA-Public Use
  Company Number: US-BRISTOL-MYERS SQUIBB COMPANY-18936153

PATIENT
  Age: 61 Year
  Sex: Male
  Weight: 102.04 kg

DRUGS (6)
  1. BYETTA [Suspect]
     Indication: TYPE 2 DIABETES MELLITUS
     Dosage: 5MCG BID,10 YEARS AGO,1 MONTH-DOSE INCREASED:BYETTA 10MCG BID.  ?LAST DOSE:BYETTA 10MCG,22MAY2013
     Route: 058
     Dates: end: 20130522
  2. CRESTOR [Concomitant]
  3. NEURONTIN [Concomitant]
  4. GLUCOTROL [Concomitant]
  5. LANTUS [Concomitant]
     Dosage: 30MG SHOT OF QHS
  6. THIABENDAZOLE [Concomitant]
     Indication: THYROID DISORDER

REACTIONS (2)
  - Constipation [Unknown]
  - Injection site erythema [Recovered/Resolved]
